FAERS Safety Report 8710286 (Version 4)
Quarter: 2012Q4

REPORT INFORMATION
  Report Type: 
  Country: US (occurrence: US)
  Receive Date: 20120807
  Receipt Date: 20120912
  Transmission Date: 20130627
  Serious: Yes (Hospitalization)
  Sender: FDA-Public Use
  Company Number: US-BIOGENIDEC-2012BI028728

PATIENT
  Age: 37 Year
  Sex: Male

DRUGS (11)
  1. HYDROCHLOROTHIAZIDE [Concomitant]
     Indication: HYPERTENSION
  2. METFORMIN [Concomitant]
     Indication: DIABETES MELLITUS
  3. TYSABRI [Suspect]
     Indication: MULTIPLE SCLEROSIS
     Route: 042
     Dates: start: 20120312
  4. KEPPRA [Concomitant]
     Indication: CONVULSION
  5. INSULIN [Concomitant]
     Indication: DIABETES MELLITUS
  6. VICODIN [Concomitant]
     Indication: PAIN
  7. BACLOFEN [Concomitant]
     Indication: MUSCLE SPASTICITY
  8. AMANTADINE [Concomitant]
     Indication: FATIGUE
  9. NEURONTIN [Concomitant]
     Indication: PAIN
  10. ATORVASTIN [Concomitant]
     Indication: HYPERLIPIDAEMIA
  11. LISINOPRIL [Concomitant]
     Indication: HYPERTENSION

REACTIONS (3)
  - Heat exhaustion [Recovered/Resolved]
  - Hypoaesthesia [Recovered/Resolved]
  - Gait disturbance [Recovered/Resolved]
